FAERS Safety Report 7052505-5 (Version None)
Quarter: 2010Q4

REPORT INFORMATION
  Report Type: 
  Country: None (occurrence: None)
  Receive Date: 20101019
  Receipt Date: 20101008
  Transmission Date: 20110411
  Serious: Yes (Death)
  Sender: FDA-Public Use
  Company Number: ZA-PFIZER INC-2010127964

PATIENT
  Age: 20 Year
  Sex: Male

DRUGS (8)
  1. GEODON [Suspect]
     Dosage: 20 MG, 1X/DAY, AT NIGHT
     Route: 030
     Dates: start: 20100830, end: 20100903
  2. EPILIM [Concomitant]
     Dosage: 400 MG, 2X/DAY
  3. URBANOL [Concomitant]
     Dosage: 5 MG, 3X/DAY
  4. VOLTAREN [Concomitant]
     Dosage: 50 MG, 2X/DAY
  5. LAMICTIN [Concomitant]
     Dosage: 25 MG, 2X/DAY
  6. VENLAFAXINE HYDROCHLORIDE [Concomitant]
     Dosage: 187.5 MG, TOTAL DAILY DOSE
  7. WELLBUTRIN XL [Concomitant]
     Dosage: 150 MG, 1X/DAY, IN MORNING
  8. ALLERGEX [Concomitant]
     Dosage: 4 MG, 1X/DAY, AT NIGHT

REACTIONS (1)
  - DEATH [None]
